FAERS Safety Report 5812548-3 (Version None)
Quarter: 2008Q3

REPORT INFORMATION
  Report Type: 
  Country: None (occurrence: None)
  Receive Date: 20080711
  Receipt Date: 20080630
  Transmission Date: 20090109
  Serious: Yes (Hospitalization)
  Sender: FDA-Public Use
  Company Number: S08-NLD-02351-02

PATIENT
  Age: 6 Day
  Sex: Female
  Weight: 4.26 kg

DRUGS (1)
  1. CITALOPRAM HYDROBROMIDE [Suspect]
     Route: 064
     Dates: end: 20080620

REACTIONS (5)
  - DRUG WITHDRAWAL SYNDROME [None]
  - MATERNAL DRUGS AFFECTING FOETUS [None]
  - NEONATAL DISORDER [None]
  - PARAESTHESIA [None]
  - RESTLESSNESS [None]
